FAERS Safety Report 15956879 (Version 1)
Quarter: 2019Q1

REPORT INFORMATION
  Report Type: Spontaneous
  Country: US (occurrence: US)
  Receive Date: 20190213
  Receipt Date: 20190213
  Transmission Date: 20190417
  Serious: Yes (Other)
  Sender: FDA-Public Use
  Company Number: US-009507513-1902USA003359

PATIENT
  Sex: Female
  Weight: 181.41 kg

DRUGS (1)
  1. NEXPLANON [Suspect]
     Active Substance: ETONOGESTREL
     Dosage: 1 DOSAGE FORM
     Route: 059
     Dates: start: 201510

REACTIONS (8)
  - Complication associated with device [Not Recovered/Not Resolved]
  - Weight decreased [Unknown]
  - Incorrect product administration duration [Unknown]
  - Pregnancy with contraceptive device [Recovered/Resolved]
  - Adverse event [Unknown]
  - Unintended pregnancy [Recovered/Resolved]
  - Adverse event [Recovered/Resolved]
  - Labour complication [Unknown]

NARRATIVE: CASE EVENT DATE: 2018
